FAERS Safety Report 11140406 (Version 1)
Quarter: 2015Q2

REPORT INFORMATION
  Report Type: Spontaneous
  Country: US (occurrence: US)
  Receive Date: 20150527
  Receipt Date: 20150527
  Transmission Date: 20150821
  Serious: Yes (Death, Other)
  Sender: FDA-Public Use
  Company Number: US-BAYER-2015-246035

PATIENT
  Age: 48 Year
  Sex: Male

DRUGS (5)
  1. ETHANOL [Suspect]
     Active Substance: ALCOHOL
  2. DIPHENHYDRAMINE HYDROCHLORIDE. [Suspect]
     Active Substance: DIPHENHYDRAMINE HYDROCHLORIDE
  3. CANNABIDIOL [Concomitant]
     Active Substance: CANNABIDIOL
  4. HYDROXYZINE [Suspect]
     Active Substance: HYDROXYZINE\HYDROXYZINE HYDROCHLORIDE
  5. TRAZODONE [Suspect]
     Active Substance: TRAZODONE HYDROCHLORIDE

REACTIONS (2)
  - Asphyxia [Fatal]
  - Toxicity to various agents [None]
